FAERS Safety Report 5424870-3 (Version None)
Quarter: 2007Q3

REPORT INFORMATION
  Report Type: 
  Country: None (occurrence: None)
  Receive Date: 20070824
  Receipt Date: 20070821
  Transmission Date: 20080115
  Serious: Yes (Other)
  Sender: FDA-Public Use
  Company Number: US-ASTRAZENECA-2006UW19625

PATIENT
  Age: 73 Year
  Sex: Female

DRUGS (13)
  1. ARIMIDEX [Suspect]
     Indication: BREAST CANCER
     Route: 048
     Dates: start: 20050301
  2. EVISTA [Interacting]
     Indication: BONE DENSITY DECREASED
  3. SYNTHROID [Concomitant]
  4. PRILOSEC [Concomitant]
  5. PLAVIX [Concomitant]
  6. CARDIZEM [Concomitant]
  7. LIPITOR [Concomitant]
  8. SPIRIVA [Concomitant]
  9. ASMANEX TWISTHALER [Concomitant]
  10. NASONEX [Concomitant]
  11. MULTIVITAMIN [Concomitant]
  12. ASPIRIN [Concomitant]
     Dosage: LOW DOSE
  13. SINGULAIR [Concomitant]

REACTIONS (11)
  - ALOPECIA [None]
  - BONE PAIN [None]
  - DRUG INTERACTION [None]
  - HYSTERECTOMY [None]
  - MEDICAL DEVICE COMPLICATION [None]
  - MUSCLE SPASMS [None]
  - MUSCULAR WEAKNESS [None]
  - OSTEOPENIA [None]
  - OSTEOPOROSIS [None]
  - POSTOPERATIVE ADHESION [None]
  - STAPHYLOCOCCAL INFECTION [None]
